FAERS Safety Report 16879923 (Version 2)
Quarter: 2019Q4

REPORT INFORMATION
  Report Type: Spontaneous
  Country: US (occurrence: US)
  Receive Date: 20191003
  Receipt Date: 20191205
  Transmission Date: 20200122
  Serious: Yes (Other)
  Sender: FDA-Public Use
  Company Number: US-BIOGEN-2019BI00791153

PATIENT
  Sex: Female

DRUGS (1)
  1. TECFIDERA [Suspect]
     Active Substance: DIMETHYL FUMARATE
     Indication: MULTIPLE SCLEROSIS
     Route: 065
     Dates: start: 20190917, end: 20190926

REACTIONS (6)
  - Colitis ulcerative [Unknown]
  - Diarrhoea [Recovered/Resolved]
  - Malaise [Unknown]
  - Anxiety [Unknown]
  - Vomiting [Recovered/Resolved]
  - Nausea [Recovered/Resolved]
